FAERS Safety Report 4318057-5 (Version None)
Quarter: 2004Q1

REPORT INFORMATION
  Report Type: 
  Country: None (occurrence: None)
  Receive Date: 20040317
  Receipt Date: 20040113
  Transmission Date: 20041129
  Serious: Yes (Life-Threatening)
  Sender: FDA-Public Use
  Company Number: 12477238

PATIENT
  Age: 12 Year
  Sex: Male

DRUGS (9)
  1. BRIPLATIN [Suspect]
     Indication: RHABDOMYOSARCOMA
     Dosage: 6-10 MG
     Route: 042
     Dates: start: 19910704, end: 19920724
  2. PARAPLATIN [Suspect]
     Indication: RHABDOMYOSARCOMA
     Dosage: 10-60 MG
     Route: 042
     Dates: start: 19920829, end: 19950827
  3. IFOMIDE [Suspect]
     Indication: RHABDOMYOSARCOMA
     Dosage: 500-1000 MG
     Route: 042
     Dates: start: 19910703, end: 19950827
  4. LASTET [Suspect]
     Indication: RHABDOMYOSARCOMA
     Dosage: 30-60 MG
     Route: 042
     Dates: start: 19910815, end: 19940118
  5. ENDOXAN [Suspect]
     Indication: RHABDOMYOSARCOMA
     Dosage: 100-130 MG
     Route: 042
     Dates: start: 19891226, end: 19910426
  6. ONCOVIN [Suspect]
     Indication: RHABDOMYOSARCOMA
     Dosage: 0.4-1.1 MG
     Route: 042
     Dates: start: 19891226, end: 19910829
  7. COSMEGEN [Suspect]
     Indication: RHABDOMYOSARCOMA
     Dosage: 0.1-1.1 MG
     Route: 042
     Dates: start: 19891226, end: 19910423
  8. ADRIAMYCIN PFS [Suspect]
     Indication: RHABDOMYOSARCOMA
     Dosage: 9-17 MG
     Route: 042
     Dates: start: 19910702, end: 19930703
  9. RADIOTHERAPY [Concomitant]
     Indication: RHABDOMYOSARCOMA
     Dates: end: 19950101

REACTIONS (3)
  - BONE SARCOMA [None]
  - RHABDOMYOSARCOMA RECURRENT [None]
  - TREATMENT RELATED SECONDARY MALIGNANCY [None]
